FAERS Safety Report 4788217-8 (Version None)
Quarter: 2005Q4

REPORT INFORMATION
  Report Type: 
  Country: None (occurrence: None)
  Receive Date: 20051005
  Receipt Date: 20050923
  Transmission Date: 20060501
  Serious: Yes (Hospitalization)
  Sender: FDA-Public Use
  Company Number: JP-ROCHE-418654

PATIENT
  Age: 70 Year
  Sex: Male

DRUGS (2)
  1. PANALDINE [Suspect]
     Indication: THROMBOSIS PROPHYLAXIS
     Route: 048
     Dates: start: 20050730, end: 20050819
  2. WARFARIN SODIUM [Concomitant]
     Route: 048

REACTIONS (3)
  - BLOOD BILIRUBIN INCREASED [None]
  - JAUNDICE [None]
  - LIVER DISORDER [None]
